FAERS Safety Report 17705344 (Version 3)
Quarter: 2021Q2

REPORT INFORMATION
  Report Type: Spontaneous
  Country: US (occurrence: US)
  Receive Date: 20200424
  Receipt Date: 20210624
  Transmission Date: 20210716
  Serious: Yes (Other)
  Sender: FDA-Public Use
  Company Number: US-GILEAD-2020-0460472

PATIENT
  Age: 48 Year
  Sex: Female

DRUGS (15)
  1. ATRIPLA [Suspect]
     Active Substance: EFAVIRENZ\EMTRICITABINE\TENOFOVIR DISOPROXIL FUMARATE
     Indication: HIV INFECTION
     Dosage: UNK
     Route: 048
     Dates: start: 20070918, end: 20121109
  2. PREZISTA [Concomitant]
     Active Substance: DARUNAVIR ETHANOLATE
  3. TYLENOL [Concomitant]
     Active Substance: ACETAMINOPHEN
  4. AMOXICILLIN. [Concomitant]
     Active Substance: AMOXICILLIN
  5. NORVIR [Concomitant]
     Active Substance: RITONAVIR
  6. ATORVASTATIN [Concomitant]
     Active Substance: ATORVASTATIN
  7. ASPIRINA [Concomitant]
     Active Substance: ASPIRIN
  8. EPIVIR [Concomitant]
     Active Substance: LAMIVUDINE
  9. SIMVASTATIN. [Concomitant]
     Active Substance: SIMVASTATIN
  10. TRUVADA [Suspect]
     Active Substance: EMTRICITABINE\TENOFOVIR DISOPROXIL FUMARATE
     Dosage: UNK
     Route: 048
     Dates: start: 20121119, end: 20150925
  11. TRUVADA [Suspect]
     Active Substance: EMTRICITABINE\TENOFOVIR DISOPROXIL FUMARATE
     Indication: HIV INFECTION
     Dosage: UNK
     Route: 048
     Dates: start: 20070624, end: 20070919
  12. ALENDRONATE [Concomitant]
     Active Substance: ALENDRONATE SODIUM
  13. CRIXIVAN [Concomitant]
     Active Substance: INDINAVIR SULFATE
  14. LORAZEPAM. [Concomitant]
     Active Substance: LORAZEPAM
  15. HYDROCODONE BITARTRATE AND ACETAMINOPHEN [Concomitant]
     Active Substance: ACETAMINOPHEN\HYDROCODONE BITARTRATE

REACTIONS (8)
  - Osteoporosis [Not Recovered/Not Resolved]
  - Osteopenia [Not Recovered/Not Resolved]
  - Depression [Unknown]
  - Emotional distress [Not Recovered/Not Resolved]
  - Upper limb fracture [Not Recovered/Not Resolved]
  - Multiple fractures [Unknown]
  - Pain [Not Recovered/Not Resolved]
  - Bone density decreased [Not Recovered/Not Resolved]

NARRATIVE: CASE EVENT DATE: 20090414
